FAERS Safety Report 7456657-4 (Version None)
Quarter: 2011Q2

REPORT INFORMATION
  Report Type: 
  Country: None (occurrence: None)
  Receive Date: 20110503
  Receipt Date: 20110428
  Transmission Date: 20111010
  Serious: Yes (Other)
  Sender: FDA-Public Use
  Company Number: JP-PFIZER INC-2011053567

PATIENT
  Age: 79 Year
  Sex: Male
  Weight: 70.4 kg

DRUGS (9)
  1. AMLODIPINE [Concomitant]
     Dosage: 2.5 MG, 2X/DAY
     Route: 048
  2. AZUCURENIN S [Concomitant]
     Dosage: 0.67 G, 2X/DAY
     Route: 048
  3. SIMVASTATIN [Concomitant]
     Dosage: 5 MG, 1X/DAY
     Route: 048
  4. ACTOS [Concomitant]
     Dosage: 15 MG, 1X/DAY
     Route: 048
  5. SIGMART [Concomitant]
     Dosage: 5 MG, 3X/DAY
     Route: 048
  6. AMARYL [Concomitant]
     Dosage: 0.5 MG, 1X/DAY
     Route: 048
  7. ACETYLSALICYLIC ACID [Concomitant]
     Dosage: 100 MG, 1X/DAY
     Route: 048
  8. DOXAZOSIN MESYLATE [Suspect]
     Dosage: 2 MG, 2X/DAY
     Route: 048
  9. ECARD HD [Concomitant]
     Dosage: ONCE DAILY
     Route: 048

REACTIONS (2)
  - FLOPPY IRIS SYNDROME [None]
  - CATARACT OPERATION [None]
